FAERS Safety Report 26095510 (Version 2)
Quarter: 2025Q4

REPORT INFORMATION
  Report Type: Spontaneous
  Country: CN (occurrence: CN)
  Receive Date: 20251127
  Receipt Date: 20251201
  Transmission Date: 20260118
  Serious: Yes (Other)
  Sender: STRIDES
  Company Number: CN-STRIDES ARCOLAB LIMITED-2025SP014735

PATIENT
  Age: 7 Year
  Sex: Male
  Weight: 41.5 kg

DRUGS (10)
  1. MYCOPHENOLATE MOFETIL [Suspect]
     Active Substance: MYCOPHENOLATE MOFETIL
     Indication: Tubulointerstitial nephritis and uveitis syndrome
     Dosage: 0.5 GRAM, BID
     Route: 065
  2. PREDNISOLONE [Suspect]
     Active Substance: PREDNISOLONE
     Indication: Tubulointerstitial nephritis
     Dosage: 45 MILLIGRAM, QD, FOR 8 WEEKS
     Route: 048
     Dates: start: 20231015
  3. PREDNISOLONE [Suspect]
     Active Substance: PREDNISOLONE
     Indication: Tubulointerstitial nephritis and uveitis syndrome
     Dosage: TAPER OF 5MG EVERY 1-2 WEEKS
     Route: 048
  4. PREDNISOLONE [Suspect]
     Active Substance: PREDNISOLONE
     Dosage: 20 MILLIGRAM, QD
     Route: 048
  5. PREDNISOLONE [Suspect]
     Active Substance: PREDNISOLONE
     Dosage: 30 MILLIGRAM, QD
     Route: 048
     Dates: start: 20240226
  6. PREDNISOLONE [Suspect]
     Active Substance: PREDNISOLONE
     Dosage: 40 MILLIGRAM, QD
     Route: 048
     Dates: start: 20240303
  7. PREDNISOLONE [Suspect]
     Active Substance: PREDNISOLONE
     Dosage: 5 MG, QD
     Route: 048
     Dates: start: 20250216
  8. TOBRAMYCIN [Suspect]
     Active Substance: TOBRAMYCIN
     Indication: Tubulointerstitial nephritis and uveitis syndrome
     Dosage: UNK
     Route: 065
  9. DEXAMETHASONE [Suspect]
     Active Substance: DEXAMETHASONE
     Indication: Tubulointerstitial nephritis and uveitis syndrome
     Dosage: UNK
     Route: 047
  10. TROPICAMIDE [Suspect]
     Active Substance: TROPICAMIDE
     Indication: Tubulointerstitial nephritis and uveitis syndrome
     Dosage: UNK

REACTIONS (3)
  - Uveitis [Recovered/Resolved]
  - Therapy non-responder [Unknown]
  - Off label use [Unknown]
